FAERS Safety Report 8439198-7 (Version None)
Quarter: 2012Q2

REPORT INFORMATION
  Report Type: 
  Country: None (occurrence: None)
  Receive Date: 20120615
  Receipt Date: 20120612
  Transmission Date: 20120825
  Serious: Yes (Hospitalization, Other)
  Sender: FDA-Public Use
  Company Number: CA-ABBOTT-11P-028-0862076-00

PATIENT
  Sex: Female
  Weight: 70.37 kg

DRUGS (5)
  1. VITAMIN D [Concomitant]
     Indication: RHEUMATOID ARTHRITIS
     Route: 048
  2. HUMIRA [Suspect]
     Indication: RHEUMATOID ARTHRITIS
     Route: 058
     Dates: start: 20080922
  3. METHOTREXATE [Suspect]
     Indication: RHEUMATOID ARTHRITIS
     Dosage: 4 TABLETS A WEEK
     Route: 048
  4. LEUCOVORIN CALCIUM [Suspect]
     Indication: RHEUMATOID ARTHRITIS
     Route: 048
  5. CELEBREX [Concomitant]
     Indication: RHEUMATOID ARTHRITIS
     Route: 048

REACTIONS (14)
  - HYPOTENSION [None]
  - VOCAL CORD DISORDER [None]
  - PERICARDITIS [None]
  - MYOCARDITIS [None]
  - MYOCARDIAL INFARCTION [None]
  - FLUID RETENTION [None]
  - BLOOD CHOLESTEROL INCREASED [None]
  - LARYNGITIS [None]
  - DIARRHOEA [None]
  - ANGINA PECTORIS [None]
  - NASOPHARYNGITIS [None]
  - DYSPNOEA [None]
  - INCORRECT DOSE ADMINISTERED [None]
  - ALOPECIA [None]
